FAERS Safety Report 8913431 (Version 2)
Quarter: 2014Q2

REPORT INFORMATION
  Report Type: Spontaneous
  Country: US (occurrence: US)
  Receive Date: 20121119
  Receipt Date: 20131024
  Transmission Date: 20141212
  Serious: Yes (Other)
  Sender: FDA-Public Use
  Company Number: US-PFIZER INC-HQWYE502830JUN06

PATIENT
  Age: 69 Year
  Sex: Female

DRUGS (4)
  1. PREMPHASE [Suspect]
     Indication: HORMONE REPLACEMENT THERAPY
     Dosage: 0.625/0.5 MG
     Route: 048
     Dates: start: 199612, end: 200004
  2. PREMARIN [Suspect]
     Indication: HORMONE REPLACEMENT THERAPY
     Dosage: 0.625 MG
     Route: 048
     Dates: start: 198709, end: 199702
  3. PROVERA [Suspect]
     Indication: HORMONE REPLACEMENT THERAPY
     Dosage: 0.5MG
     Route: 048
     Dates: start: 198709, end: 199702
  4. MEDROXYPROGESTERONE ACETATE [Suspect]
     Indication: HORMONE REPLACEMENT THERAPY
     Dosage: 0.5 MG
     Route: 048
     Dates: start: 198709, end: 199702

REACTIONS (1)
  - Breast cancer [Unknown]
